FAERS Safety Report 15861948 (Version 2)
Quarter: 2019Q4

REPORT INFORMATION
  Report Type: Spontaneous
  Country: US (occurrence: US)
  Receive Date: 20190124
  Receipt Date: 20191202
  Transmission Date: 20200122
  Serious: No
  Sender: FDA-Public Use
  Company Number: US-PFIZER INC-2019031589

PATIENT
  Age: 70 Year
  Sex: Male
  Weight: 81.63 kg

DRUGS (5)
  1. METOPROLOL TARTRATE. [Suspect]
     Active Substance: METOPROLOL TARTRATE
     Dosage: UNK
  2. DARVON [Suspect]
     Active Substance: PROPOXYPHENE HYDROCHLORIDE
     Dosage: UNK
  3. DARVOCET [Suspect]
     Active Substance: ACETAMINOPHEN\PROPOXYPHENE HYDROCHLORIDE
     Dosage: UNK
  4. DEMEROL [Suspect]
     Active Substance: MEPERIDINE HYDROCHLORIDE
     Dosage: UNK
  5. MORPHINE SULFATE. [Suspect]
     Active Substance: MORPHINE SULFATE
     Dosage: UNK

REACTIONS (1)
  - Drug hypersensitivity [Unknown]
